FAERS Safety Report 4404999-9 (Version None)
Quarter: 2004Q3

REPORT INFORMATION
  Report Type: 
  Country: None (occurrence: None)
  Receive Date: 20040722
  Receipt Date: 20030826
  Transmission Date: 20050211
  Serious: Yes (Hospitalization, Disabling, Other)
  Sender: FDA-Public Use
  Company Number: US-MERCK-0308USA02595

PATIENT
  Age: 56 Year
  Sex: Male
  Weight: 101 kg

DRUGS (8)
  1. VICODIN [Concomitant]
     Indication: OSTEOARTHRITIS
     Route: 065
  2. ASPIRIN [Concomitant]
     Indication: OSTEOARTHRITIS
     Route: 065
  3. ADVIL [Concomitant]
     Indication: OSTEOARTHRITIS
     Route: 065
  4. ADVIL [Concomitant]
     Indication: HERPES ZOSTER
     Route: 065
  5. VIOXX [Suspect]
     Indication: ARTHRALGIA
     Route: 048
     Dates: start: 20010501, end: 20010722
  6. VIOXX [Suspect]
     Route: 048
     Dates: start: 20010723
  7. ULTRAM [Concomitant]
     Indication: OSTEOARTHRITIS
     Route: 065
     Dates: start: 20010501
  8. ULTRAM [Concomitant]
     Indication: PAIN
     Route: 065
     Dates: start: 20010501

REACTIONS (19)
  - ACUTE MYOCARDIAL INFARCTION [None]
  - ANXIETY [None]
  - CALCULUS URETERIC [None]
  - CALCULUS URINARY [None]
  - COLD SWEAT [None]
  - CORONARY ARTERY OCCLUSION [None]
  - DIVERTICULITIS [None]
  - FATIGUE [None]
  - HEPATIC CYST [None]
  - INJURY [None]
  - NAUSEA [None]
  - NERVOUSNESS [None]
  - OBSTRUCTIVE UROPATHY [None]
  - PNEUMONIA INFLUENZAL [None]
  - PULMONARY ARTERIAL PRESSURE INCREASED [None]
  - TRICUSPID VALVE INCOMPETENCE [None]
  - VENTRICULAR HYPERTROPHY [None]
  - VENTRICULAR HYPOKINESIA [None]
  - VOMITING [None]
